FAERS Safety Report 8818723 (Version 1)
Quarter: 2012Q4

REPORT INFORMATION
  Report Type: 
  Country: DE (occurrence: DE)
  Receive Date: 20121001
  Receipt Date: 20121001
  Transmission Date: 20130627
  Serious: Yes (Hospitalization, Congenital Anomaly)
  Sender: FDA-Public Use
  Company Number: DE-MYLANLABS-2012S1019402

PATIENT
  Age: 0 Year
  Sex: Female
  Weight: 3.4 kg

DRUGS (5)
  1. LAMOTRIGINE [Suspect]
     Dosage: 400 [mg/d ]/ 200mg-0-200mg
     Route: 064
  2. UNSPECIFIED INGREDIENT [Suspect]
     Dosage: date of exposure unknown
     Route: 064
  3. HUMALOG [Concomitant]
     Route: 064
     Dates: start: 20110709, end: 20120321
  4. FOLSAN [Concomitant]
     Indication: PROPHYLAXIS OF NEURAL TUBE DEFECT
     Route: 064
  5. NOVORAPID [Concomitant]
     Route: 064
     Dates: start: 20110709, end: 20120321

REACTIONS (4)
  - Exposure during pregnancy [Unknown]
  - Gastroschisis [Recovered/Resolved with Sequelae]
  - Haemangioma [Unknown]
  - Atrial septal defect [Unknown]
